FAERS Safety Report 6888425-6 (Version None)
Quarter: 2010Q3

REPORT INFORMATION
  Report Type: 
  Country: None (occurrence: None)
  Receive Date: 20100730
  Receipt Date: 20100525
  Transmission Date: 20110219
  Serious: Yes (Other)
  Sender: FDA-Public Use
  Company Number: CO-PFIZER INC-2010065665

PATIENT
  Age: 69 Year
  Sex: Female

DRUGS (10)
  1. LYRICA [Suspect]
     Indication: NEURALGIA
     Dosage: 1X/DAY
     Route: 048
     Dates: start: 20100301
  2. LYRICA [Suspect]
     Indication: SCIATIC NERVE NEUROPATHY
  3. LIPITOR [Suspect]
     Indication: BLOOD CHOLESTEROL INCREASED
     Dosage: 20 MG, DAILY
  4. OLMESARTAN MEDOXOMIL [Suspect]
     Indication: HYPERTENSION
     Dosage: 10 MG, 1X/DAY
     Route: 048
  5. NEURONTIN [Suspect]
     Dosage: 400 MG, DAILY
  6. WARFARIN [Concomitant]
     Dosage: 5 MG, 1X/DAY
  7. WARFARIN [Concomitant]
     Dosage: 2.5 MG, 1X/DAY
  8. METOPROLOL SUCCINATE [Concomitant]
     Indication: HYPERTENSION
     Dosage: 100 MG, 1X/DAY
  9. CALCIUM [Concomitant]
     Indication: OSTEOPOROSIS PROPHYLAXIS
     Dosage: 2 DF, DAILY
  10. VITAMIN D [Concomitant]
     Indication: PAIN
     Dosage: UNK

REACTIONS (1)
  - ATRIAL FIBRILLATION [None]
